FAERS Safety Report 6581908-8 (Version None)
Quarter: 2010Q1

REPORT INFORMATION
  Report Type: 
  Country: None (occurrence: None)
  Receive Date: 20100212
  Receipt Date: 20100212
  Transmission Date: 20100710
  Serious: No
  Sender: FDA-Public Use
  Company Number: None

PATIENT
  Age: 70 Year
  Sex: Male
  Weight: 87.1 kg

DRUGS (1)
  1. ASPIRIN [Suspect]
     Indication: PAIN
     Dates: start: 20070801, end: 20090922

REACTIONS (1)
  - GASTRIC HAEMORRHAGE [None]
